FAERS Safety Report 10279375 (Version 1)
Quarter: 2014Q3

REPORT INFORMATION
  Report Type: Other
  Country: FR (occurrence: FR)
  Receive Date: 20140707
  Receipt Date: 20140707
  Transmission Date: 20150326
  Serious: No
  Sender: FDA-Public Use
  Company Number: PHHY2014FR081097

PATIENT

DRUGS (2)
  1. ILARIS [Suspect]
     Active Substance: CANAKINUMAB
     Indication: HYPER IGD SYNDROME
     Dosage: UNK UKN, UNK
  2. ILARIS [Suspect]
     Active Substance: CANAKINUMAB
     Indication: OFF LABEL USE

REACTIONS (1)
  - Off label use [Unknown]
